FAERS Safety Report 9386989 (Version 1)
Quarter: 2013Q3

REPORT INFORMATION
  Report Type: Spontaneous
  Country: DE (occurrence: DE)
  Receive Date: 20130708
  Receipt Date: 20130708
  Transmission Date: 20140515
  Serious: Yes (Hospitalization, Other)
  Sender: FDA-Public Use
  Company Number: DE-ROCHE-1232287

PATIENT
  Age: 70 Year
  Sex: Male
  Weight: 70 kg

DRUGS (7)
  1. MABTHERA [Suspect]
     Indication: GRANULOMATOSIS WITH POLYANGIITIS
     Route: 042
     Dates: start: 20110704
  2. MABTHERA [Suspect]
     Indication: VASCULITIS
     Route: 042
     Dates: start: 20110720
  3. DECORTIN H [Concomitant]
     Indication: VASCULITIS
     Dosage: DAILY
     Route: 048
  4. AMLODIPIN [Concomitant]
     Indication: HYPERTENSION
     Dosage: DAILY
     Route: 048
  5. PALEXIA [Concomitant]
     Indication: PAIN
     Dosage: ORAL
     Route: 065
  6. DICLOFENAC [Concomitant]
     Indication: PAIN
     Route: 048
  7. PANTOZOL (GERMANY) [Concomitant]
     Indication: ABDOMINAL PAIN UPPER
     Dosage: DAILY
     Route: 048

REACTIONS (2)
  - Intestinal perforation [Unknown]
  - Diverticular perforation [Recovered/Resolved with Sequelae]
